FAERS Safety Report 10236868 (Version 1)
Quarter: 2014Q2

REPORT INFORMATION
  Report Type: Spontaneous
  Country: CN (occurrence: CN)
  Receive Date: 20140613
  Receipt Date: 20140613
  Transmission Date: 20141212
  Serious: Yes (Other)
  Sender: FDA-Public Use
  Company Number: CN-PFIZER INC-2014161663

PATIENT
  Age: 8 Decade
  Sex: Male

DRUGS (1)
  1. MEDROL [Suspect]
     Indication: ASTHMA
     Dosage: 1-7 TABLETS DAILY
     Route: 048
     Dates: start: 2012, end: 2012

REACTIONS (6)
  - Drug dependence [Unknown]
  - Haemorrhage subcutaneous [Unknown]
  - Retinal haemorrhage [Unknown]
  - Osteoporosis [Unknown]
  - Asthma [Unknown]
  - Emotional distress [Unknown]
